FAERS Safety Report 21741966 (Version 1)
Quarter: 2022Q4

REPORT INFORMATION
  Report Type: Spontaneous
  Country: CN (occurrence: CN)
  Receive Date: 20221216
  Receipt Date: 20221216
  Transmission Date: 20230113
  Serious: Yes (Hospitalization, Other)
  Sender: FDA-Public Use
  Company Number: CN-BAYER-2022A167154

PATIENT
  Age: 69 Year
  Sex: Female
  Weight: 60 kg

DRUGS (4)
  1. XARELTO [Suspect]
     Active Substance: RIVAROXABAN
     Indication: Atrial fibrillation
     Dosage: 15 MG, QD
     Route: 048
     Dates: start: 20220801, end: 20221125
  2. XARELTO [Suspect]
     Active Substance: RIVAROXABAN
     Indication: Anticoagulant therapy
     Route: 048
  3. BISOPROLOL FUMARATE [Concomitant]
     Active Substance: BISOPROLOL FUMARATE
     Indication: Heart rate abnormal
     Dosage: 5 MG, QD
     Route: 048
     Dates: start: 20220801, end: 20221125
  4. LOSARTAN POTASSIUM [Concomitant]
     Active Substance: LOSARTAN POTASSIUM
     Dosage: 50 MG, QD
     Route: 048
     Dates: start: 20220801, end: 20221125

REACTIONS (20)
  - Upper gastrointestinal haemorrhage [Recovering/Resolving]
  - Mouth haemorrhage [Unknown]
  - Pneumonitis [Unknown]
  - Aortic arteriosclerosis [Unknown]
  - Arteriosclerosis coronary artery [Unknown]
  - Cholecystitis chronic [Unknown]
  - Haematochezia [Recovering/Resolving]
  - Abdominal discomfort [Recovering/Resolving]
  - Melaena [Recovering/Resolving]
  - Asthenia [Recovering/Resolving]
  - Faeces soft [Recovering/Resolving]
  - Haemoptysis [Unknown]
  - Oropharyngeal discomfort [Unknown]
  - Cardiomegaly [Unknown]
  - Cholelithiasis [Unknown]
  - Renal cyst [Unknown]
  - Diverticulum intestinal [Unknown]
  - Biliary dilatation [Unknown]
  - Bladder disorder [Unknown]
  - Retroperitoneal lymphadenopathy [Unknown]

NARRATIVE: CASE EVENT DATE: 20221124
